FAERS Safety Report 5279678-9 (Version None)
Quarter: 2007Q1

REPORT INFORMATION
  Report Type: 
  Country: None (occurrence: None)
  Receive Date: 20070323
  Receipt Date: 20070312
  Transmission Date: 20070707
  Serious: Yes (Other)
  Sender: FDA-Public Use
  Company Number: 34722-1

PATIENT
  Age: 13 Year
  Sex: Female

DRUGS (1)
  1. METHOTREXATE [Suspect]
     Dosage: 0.4 ML/SUBCUTANEOUSLY/WEEKLY
     Route: 058
     Dates: start: 20070217

REACTIONS (1)
  - MEDICATION ERROR [None]
